FAERS Safety Report 24654026 (Version 1)
Quarter: 2024Q4

REPORT INFORMATION
  Report Type: Report from Study
  Country: US (occurrence: US)
  Receive Date: 20241122
  Receipt Date: 20241122
  Transmission Date: 20250114
  Serious: Yes (Hospitalization)
  Sender: EISAI
  Company Number: US-Eisai-EC-2024-179120

PATIENT
  Age: 79 Year
  Sex: Female
  Weight: 98.4 kg

DRUGS (19)
  1. LENVIMA [Suspect]
     Active Substance: LENVATINIB
     Indication: Hepatic cancer
     Dosage: MISSED A DOSE
     Route: 048
     Dates: start: 20240507, end: 202405
  2. LENVIMA [Suspect]
     Active Substance: LENVATINIB
     Route: 048
     Dates: start: 202406, end: 2024
  3. POTASSIUM CHLORIDE [Concomitant]
     Active Substance: POTASSIUM CHLORIDE
     Dosage: DOSE AND FREQUENCY UNKNOWN
  4. MAGOX [Concomitant]
     Dosage: DOSE AND FREQUENCY UNKNOWN
  5. MOUNJARO [Concomitant]
     Active Substance: TIRZEPATIDE
     Dosage: DOSE AND FREQUENCY UNKNOWN
  6. MINERALS\VITAMINS [Concomitant]
     Active Substance: MINERALS\VITAMINS
     Dosage: DOSE AND FREQUENCY UNKNOWN
  7. NATEGLINIDE [Concomitant]
     Active Substance: NATEGLINIDE
     Dosage: DOSE AND FREQUENCY UNKNOWN
  8. DIGEST BASIC [Concomitant]
     Dosage: DOSE AND FREQUENCY UNKNOWN
  9. LORATADINE [Concomitant]
     Active Substance: LORATADINE
     Dosage: DOSE AND FREQUENCY UNKNOWN
  10. ARMOUR THYROID [Concomitant]
     Active Substance: THYROID, PORCINE
     Dosage: DOSE AND FREQUENCY UNKNOWN
  11. BENADRYL [Concomitant]
     Active Substance: DIPHENHYDRAMINE HYDROCHLORIDE
     Dosage: DOSE AND FREQUENCY UNKNOWN
  12. CALCIUM [Concomitant]
     Active Substance: CALCIUM
     Dosage: DOSE AND FREQUENCY UNKNOWN
  13. VIT B-12 [Concomitant]
     Dosage: DOSE AND FREQUENCY UNKNOWN
  14. CYMBALTA [Concomitant]
     Active Substance: DULOXETINE HYDROCHLORIDE
     Dosage: DOSE AND FREQUENCY UNKNOWN
  15. PROBIOTICS NOS [Concomitant]
     Active Substance: PROBIOTICS NOS
     Dosage: DOSE AND FREQUENCY UNKNOWN
  16. FLAXSEED [Concomitant]
     Active Substance: FLAX SEED
     Dosage: DOSE AND FREQUENCY UNKNOWN
  17. JARDIANCE [Concomitant]
     Active Substance: EMPAGLIFLOZIN
     Dosage: DOSE AND FREQUENCY UNKNOWN
  18. TORSEMIDE [Concomitant]
     Active Substance: TORSEMIDE
     Dosage: DOSE AND FREQUENCY UNKNOWN
  19. VITAMIN D NOS [Concomitant]
     Active Substance: CHOLECALCIFEROL\ERGOCALCIFEROL
     Dosage: DOSE AND FREQUENCY UNKNOWN

REACTIONS (3)
  - Abdominal pain upper [Unknown]
  - Vomiting [Unknown]
  - Decreased appetite [Unknown]

NARRATIVE: CASE EVENT DATE: 20241102
